FAERS Safety Report 5096715-5 (Version None)
Quarter: 2006Q3

REPORT INFORMATION
  Report Type: 
  Country: None (occurrence: None)
  Receive Date: 20060831
  Receipt Date: 20060821
  Transmission Date: 20061208
  Serious: Yes (Hospitalization, Disabling)
  Sender: FDA-Public Use
  Company Number: 2006JP001897

PATIENT
  Age: 73 Year
  Sex: Male
  Weight: 54 kg

DRUGS (21)
  1. TACROLIMUS CAPSULES (TACROLIMUS CAPSULES)CAPSULE [Suspect]
     Indication: RHEUMATOID ARTHRITIS
     Dosage: 2 MG, ORAL
     Route: 048
     Dates: start: 20051214
  2. PREDNISOLONE [Suspect]
     Indication: RHEUMATOID ARTHRITIS
     Dosage: SEE IMAGE
     Route: 048
     Dates: end: 20060110
  3. PREDNISOLONE [Suspect]
     Indication: RHEUMATOID ARTHRITIS
     Dosage: SEE IMAGE
     Route: 048
     Dates: start: 20060111, end: 20060119
  4. PREDNISOLONE [Suspect]
     Indication: RHEUMATOID ARTHRITIS
     Dosage: SEE IMAGE
     Route: 048
     Dates: start: 20060120, end: 20060202
  5. PREDNISOLONE [Suspect]
     Indication: RHEUMATOID ARTHRITIS
     Dosage: SEE IMAGE
     Route: 048
     Dates: start: 20060203, end: 20060216
  6. PREDNISOLONE [Suspect]
     Indication: RHEUMATOID ARTHRITIS
     Dosage: SEE IMAGE
     Route: 048
     Dates: start: 20060217, end: 20060316
  7. PREDNISOLONE [Suspect]
     Indication: RHEUMATOID ARTHRITIS
     Dosage: SEE IMAGE
     Route: 048
     Dates: start: 20060317, end: 20060421
  8. PREDNISOLONE [Suspect]
     Indication: RHEUMATOID ARTHRITIS
     Dosage: SEE IMAGE
     Route: 048
     Dates: start: 20060422, end: 20060524
  9. PREDNISOLONE [Suspect]
     Indication: RHEUMATOID ARTHRITIS
     Dosage: SEE IMAGE
     Route: 048
     Dates: start: 20060525
  10. ENBREL [Suspect]
     Indication: RHEUMATOID ARTHRITIS
     Dosage: 50 MG, WEEKLY
     Dates: start: 20060111, end: 20060502
  11. VOLTAREN [Concomitant]
  12. RABEPRAZOLE SODIUM [Concomitant]
  13. ALFAROL (ALFACALCIDOL) [Concomitant]
  14. TAMSULOSIN HCL [Concomitant]
  15. ISONIAZID [Concomitant]
  16. PYDOXAL (PYRIDOXAL PHOSPHATE) [Concomitant]
  17. MAGLAX (MAGNESIUM OXIDE) [Concomitant]
  18. TICLOPIDINE HCL [Concomitant]
  19. MYONAL (EPERISONE HYDROCHLORIDE) [Concomitant]
  20. CEROCRAL (IFENPRODIL TARTRATE) [Concomitant]
  21. ACTONEL [Concomitant]

REACTIONS (3)
  - LUMBAR VERTEBRAL FRACTURE [None]
  - PATHOLOGICAL FRACTURE [None]
  - PNEUMONIA BACTERIAL [None]
